FAERS Safety Report 6999029-9 (Version None)
Quarter: 2010Q3

REPORT INFORMATION
  Report Type: 
  Country: None (occurrence: None)
  Receive Date: 20100920
  Receipt Date: 20100909
  Transmission Date: 20110219
  Serious: Yes (Hospitalization)
  Sender: FDA-Public Use
  Company Number: FR-ASTRAZENECA-2010SE42578

PATIENT
  Age: 31020 Day
  Sex: Male

DRUGS (15)
  1. NEXIUM [Suspect]
     Route: 048
     Dates: start: 20100103, end: 20100304
  2. TRIATEC [Suspect]
     Indication: HYPERTENSION
     Route: 048
     Dates: start: 20100118, end: 20100304
  3. TOPLEXIL [Suspect]
     Indication: COUGH
     Route: 048
     Dates: start: 20100201, end: 20100205
  4. ALLOPURINOL [Suspect]
     Route: 048
  5. LASIX [Concomitant]
     Dosage: 1/4 TWICE DAILY
     Route: 048
  6. KARDEGIC [Concomitant]
  7. UMULINE [Concomitant]
     Dosage: 20 UNITS PER DAY
     Route: 058
  8. NITRODERM [Concomitant]
     Dosage: TD
     Dates: start: 20100105
  9. EFFERALGAN [Concomitant]
     Route: 048
     Dates: start: 20100101
  10. SERETIDE [Concomitant]
     Dosage: 2 PUFFS TWICE DAILY
     Route: 048
     Dates: start: 20100208
  11. TAMSULOSIN HCL [Concomitant]
  12. SPECIAFOLDINE [Concomitant]
  13. CALCIPARINE [Concomitant]
     Route: 058
     Dates: start: 20091231, end: 20100119
  14. CEFTRIAXONE [Concomitant]
     Dates: start: 20100128, end: 20100206
  15. PERINDOPRIL ERBUMINE [Concomitant]

REACTIONS (1)
  - ANAEMIA MACROCYTIC [None]
